FAERS Safety Report 18619987 (Version 2)
Quarter: 2020Q4

REPORT INFORMATION
  Report Type: Spontaneous
  Country: GB (occurrence: GB)
  Receive Date: 20201215
  Receipt Date: 20201222
  Transmission Date: 20210114
  Serious: Yes (Hospitalization, Disabling, Other)
  Sender: FDA-Public Use
  Company Number: NVSC2020GB078481

PATIENT
  Age: 22 Year
  Sex: Male

DRUGS (22)
  1. FENTANYL. [Suspect]
     Active Substance: FENTANYL
     Indication: STATUS EPILEPTICUS
     Dosage: 300 MG/KG (UP TO 300 UG/KG/H)
     Route: 040
  2. METHYLPREDNISOLONE. [Suspect]
     Active Substance: METHYLPREDNISOLONE
     Indication: STATUS EPILEPTICUS
     Dosage: 1 G, QD
     Route: 042
  3. PHENOBARBITONE [Suspect]
     Active Substance: PHENOBARBITAL
     Indication: STATUS EPILEPTICUS
     Dosage: UNK
     Route: 065
  4. CEFTRIAXONE SODIUM. [Suspect]
     Active Substance: CEFTRIAXONE SODIUM
     Indication: EVIDENCE BASED TREATMENT
     Dosage: UNK
     Route: 042
  5. PHENYTOIN. [Suspect]
     Active Substance: PHENYTOIN
     Indication: STATUS EPILEPTICUS
     Dosage: UNK
     Route: 065
  6. KETAMINE [Suspect]
     Active Substance: KETAMINE
     Indication: STATUS EPILEPTICUS
     Dosage: 6 MG/KG, QH (ITRATED UP TO 6 MG/KG/HR)
     Route: 065
  7. PERAMPANEL [Suspect]
     Active Substance: PERAMPANEL
     Indication: STATUS EPILEPTICUS
     Dosage: 14 MG, QD
     Route: 065
  8. LACOSAMIDE. [Suspect]
     Active Substance: LACOSAMIDE
     Indication: STATUS EPILEPTICUS
     Dosage: UNK
     Route: 065
  9. CLOBAZAM. [Suspect]
     Active Substance: CLOBAZAM
     Indication: STATUS EPILEPTICUS
     Dosage: UNK
     Route: 065
  10. TOPIRAMATE. [Suspect]
     Active Substance: TOPIRAMATE
     Indication: STATUS EPILEPTICUS
     Dosage: UNK
     Route: 042
  11. LORAZEPAM. [Suspect]
     Active Substance: LORAZEPAM
     Indication: STATUS EPILEPTICUS
     Dosage: UNK
     Route: 065
  12. VALPROATE SODIUM. [Suspect]
     Active Substance: VALPROATE SODIUM
     Indication: STATUS EPILEPTICUS
     Dosage: UNK
     Route: 065
  13. MIDAZOLAM. [Suspect]
     Active Substance: MIDAZOLAM
     Indication: STATUS EPILEPTICUS
     Dosage: 20 MG, QH (UP TO 20 MG/HR)
     Route: 065
  14. CLONAZEPAM. [Suspect]
     Active Substance: CLONAZEPAM
     Indication: STATUS EPILEPTICUS
     Dosage: UNK
     Route: 065
  15. LORAZEPAM. [Suspect]
     Active Substance: LORAZEPAM
     Indication: PAROXYSMAL SYMPATHETIC HYPERACTIVITY
  16. FENTANYL. [Suspect]
     Active Substance: FENTANYL
     Indication: SEDATION
  17. PROPOFOL. [Suspect]
     Active Substance: PROPOFOL
     Indication: STATUS EPILEPTICUS
     Dosage: 5 MG/KG, QH (UPTO 5 MG/KG EVR HOUR)
     Route: 040
  18. ACICLOVIR [Suspect]
     Active Substance: ACYCLOVIR
     Indication: EVIDENCE BASED TREATMENT
     Dosage: UNK
     Route: 042
  19. REMIFENTANIL [Suspect]
     Active Substance: REMIFENTANIL
     Indication: SEDATION
     Dosage: UNK
     Route: 065
  20. LEVETIRACETAM. [Suspect]
     Active Substance: LEVETIRACETAM
     Indication: STATUS EPILEPTICUS
     Dosage: UNK
     Route: 065
  21. PROPOFOL. [Suspect]
     Active Substance: PROPOFOL
     Indication: SEDATION
  22. THIOPENTONE [Suspect]
     Active Substance: THIOPENTAL SODIUM
     Indication: STATUS EPILEPTICUS
     Dosage: 7 MG/KG, QH (UP TO 7 MG/KG/HR)
     Route: 042

REACTIONS (32)
  - Memory impairment [Unknown]
  - Intentional product use issue [Unknown]
  - Deep vein thrombosis [Unknown]
  - Intensive care unit acquired weakness [Unknown]
  - Hypercalcaemia [Unknown]
  - Hypernatraemia [Unknown]
  - Bradycardia [Unknown]
  - Ileus [Unknown]
  - Off label use [Unknown]
  - Fungal infection [Unknown]
  - Hypothyroidism [Unknown]
  - Acute lung injury [Unknown]
  - Abdominal compartment syndrome [Unknown]
  - Pyrexia [Unknown]
  - Thrombophlebitis [Unknown]
  - Partial seizures [Not Recovered/Not Resolved]
  - Hypotension [Unknown]
  - Liver function test abnormal [Unknown]
  - Drug hypersensitivity [Unknown]
  - Rash [Unknown]
  - Infection [Unknown]
  - Weight decreased [Unknown]
  - Behaviour disorder [Unknown]
  - Acute kidney injury [Unknown]
  - Tachycardia [Unknown]
  - Anaemia [Unknown]
  - Decubitus ulcer [Unknown]
  - Product use in unapproved indication [Unknown]
  - Muscle contracture [Unknown]
  - Haematuria traumatic [Unknown]
  - Coagulopathy [Unknown]
  - Cognitive disorder [Not Recovered/Not Resolved]
